FAERS Safety Report 7344166-2 (Version None)
Quarter: 2011Q1

REPORT INFORMATION
  Report Type: 
  Country: None (occurrence: None)
  Receive Date: 20110310
  Receipt Date: 20100722
  Transmission Date: 20110831
  Serious: No
  Sender: FDA-Public Use
  Company Number: A0871821A

PATIENT
  Sex: Male

DRUGS (1)
  1. NICORETTE [Suspect]

REACTIONS (2)
  - BLOOD GLUCOSE INCREASED [None]
  - INTENTIONAL DRUG MISUSE [None]
